FAERS Safety Report 8561563-8 (Version None)
Quarter: 2012Q3

REPORT INFORMATION
  Report Type: 
  Country: None (occurrence: None)
  Receive Date: 20120802
  Receipt Date: 20120730
  Transmission Date: 20120928
  Serious: Yes (Other)
  Sender: FDA-Public Use
  Company Number: PHHY2012BE043112

PATIENT
  Sex: Male

DRUGS (5)
  1. OMEPRAZOLE [Suspect]
     Indication: GASTROOESOPHAGEAL REFLUX DISEASE
     Dosage: 1 DF, DAILY, ABOUT 20 DAYS PER MONTH
     Dates: start: 20110301, end: 20120501
  2. OMEPRAZOLE [Suspect]
     Dosage: 40 MG, BID, ABOUT 10 DAYS PER MONTH
     Dates: end: 20120501
  3. CYMBALTA [Concomitant]
     Indication: DEPRESSION
     Dates: start: 20050101
  4. INDERAL [Concomitant]
     Dosage: 10 MG, QD
  5. ZOLPIDEM [Concomitant]
     Indication: SLEEP DISORDER
     Dosage: 10 MG, UNK

REACTIONS (6)
  - VISUAL IMPAIRMENT [None]
  - EAR PAIN [None]
  - ERYTHEMA [None]
  - SWELLING FACE [None]
  - BLINDNESS [None]
  - BLISTER [None]
